FAERS Safety Report 9259463 (Version 1)
Quarter: 2013Q2

REPORT INFORMATION
  Report Type: Report from Study
  Country: TW (occurrence: TW)
  Receive Date: 20130428
  Receipt Date: 20130428
  Transmission Date: 20140414
  Serious: No
  Sender: FDA-Public Use
  Company Number: PHHY2013TW041316

PATIENT
  Age: 36 Year
  Sex: Female

DRUGS (3)
  1. AMN107 [Suspect]
     Dosage: 600 MG, UNK
     Dates: start: 20100226
  2. FERROUS GLUCO-B [Concomitant]
     Indication: ANAEMIA
     Dates: end: 20120724
  3. TRIAMCINOLONE [Concomitant]
     Indication: APHTHOUS STOMATITIS
     Dates: end: 20110902

REACTIONS (1)
  - Thrombocytopenia [Unknown]
